FAERS Safety Report 20684146 (Version 4)
Quarter: 2023Q2

REPORT INFORMATION
  Report Type: Spontaneous
  Country: CA (occurrence: CA)
  Receive Date: 20220407
  Receipt Date: 20230417
  Transmission Date: 20230722
  Serious: Yes (Other)
  Sender: FDA-Public Use
  Company Number: CA-PFIZER INC-202200468215

PATIENT
  Age: 51 Year
  Sex: Female
  Weight: 71.202 kg

DRUGS (2)
  1. PREMARIN [Suspect]
     Active Substance: ESTROGENS, CONJUGATED
     Indication: Atrophic vulvovaginitis
     Dosage: 1GRAM DAILY FOR 2 WEEKS
     Route: 065
     Dates: start: 2022
  2. PREMARIN [Suspect]
     Active Substance: ESTROGENS, CONJUGATED
     Dosage: THEN 1 GRAM TWICE WEEKLY
     Route: 065

REACTIONS (2)
  - Fungal infection [Unknown]
  - Off label use [Unknown]
